FAERS Safety Report 23120258 (Version 1)
Quarter: 2023Q4

REPORT INFORMATION
  Report Type: Spontaneous
  Country: DE (occurrence: DE)
  Receive Date: 20231029
  Receipt Date: 20231029
  Transmission Date: 20240109
  Serious: Yes (Life-Threatening, Other)
  Sender: FDA-Public Use
  Company Number: DE-EMA-DD-20231016-7180171-123302

PATIENT
  Age: 69 Year
  Sex: Male
  Weight: 93 kg

DRUGS (36)
  1. FAMOTIDINE [Suspect]
     Active Substance: FAMOTIDINE
     Indication: Prophylaxis
     Dosage: UNK UNK, QD
     Route: 042
     Dates: start: 19970417, end: 19970417
  2. FAMOTIDINE [Suspect]
     Active Substance: FAMOTIDINE
     Dosage: UNK UNK, QD
     Route: 042
     Dates: start: 19970426, end: 19970426
  3. ACETYLCYSTEINE [Suspect]
     Active Substance: ACETYLCYSTEINE
     Indication: Nasopharyngitis
     Dosage: 600 MG, QD
     Route: 048
     Dates: start: 19970416, end: 19970422
  4. ACETYLCYSTEINE [Suspect]
     Active Substance: ACETYLCYSTEINE
     Indication: Bronchitis chronic
  5. PHENYTOIN [Suspect]
     Active Substance: PHENYTOIN
     Indication: Seizure prophylaxis
     Dosage: 4 DF, QD
     Route: 048
     Dates: start: 19970403, end: 19970426
  6. GENTAMICIN SULFATE [Suspect]
     Active Substance: GENTAMICIN SULFATE
     Indication: Eye disorder
     Dosage: UNK
     Route: 031
     Dates: start: 19970407, end: 19970421
  7. CLORAZEPATE DIPOTASSIUM [Suspect]
     Active Substance: CLORAZEPATE DIPOTASSIUM
     Indication: Sedative therapy
     Dosage: UNK
     Route: 048
     Dates: start: 19970416, end: 19970417
  8. CARBAMAZEPINE [Suspect]
     Active Substance: CARBAMAZEPINE
     Indication: Seizure prophylaxis
     Dosage: 400 MG, QD
     Route: 048
     Dates: start: 19970424, end: 19970426
  9. INSULIN HUMAN NOS [Suspect]
     Active Substance: INSULIN HUMAN
     Indication: Diabetes mellitus
     Dosage: UNK
     Route: 042
     Dates: start: 19970417, end: 19970418
  10. DICLOFENAC [Suspect]
     Active Substance: DICLOFENAC
     Indication: Pain
     Dosage: 1 DF, QD
     Route: 048
     Dates: end: 19970422
  11. ISOSORBIDE DINITRATE [Suspect]
     Active Substance: ISOSORBIDE DINITRATE
     Indication: Coronary artery disease
     Dosage: 40 MG, QD
     Route: 048
  12. CEFAZOLIN SODIUM [Suspect]
     Active Substance: CEFAZOLIN SODIUM
     Indication: Infection prophylaxis
     Dosage: 6 G, QD
     Route: 042
     Dates: start: 19970416, end: 19970419
  13. PHENYTOIN SODIUM [Suspect]
     Active Substance: PHENYTOIN SODIUM
     Indication: Seizure prophylaxis
     Dosage: UNK, QD
     Route: 042
     Dates: start: 19970417, end: 19970417
  14. PHENYTOIN SODIUM [Suspect]
     Active Substance: PHENYTOIN SODIUM
     Dosage: UNK UNK, QD
     Route: 042
     Dates: start: 19970426, end: 19970426
  15. DEXAMETHASONE [Suspect]
     Active Substance: DEXAMETHASONE
     Indication: Prophylaxis
     Dosage: 12 MG, QD
     Route: 048
     Dates: start: 19970416, end: 19970416
  16. DEXAMETHASONE [Suspect]
     Active Substance: DEXAMETHASONE
     Dosage: 12 MG, QD
     Route: 048
     Dates: start: 19970419, end: 19970426
  17. NIFEDIPINE [Suspect]
     Active Substance: NIFEDIPINE
     Indication: Coronary artery disease
     Dosage: 2 ML, QH
     Route: 042
     Dates: start: 19970417, end: 19970417
  18. DEXAMETHASONE [Suspect]
     Active Substance: DEXAMETHASONE
     Indication: Prophylaxis
     Dosage: 32 MG, QD
     Route: 042
     Dates: start: 19970417, end: 19970418
  19. FLUIMUCIL [Suspect]
     Active Substance: ACETYLCYSTEINE
     Indication: Nasopharyngitis
     Dosage: UNK UNK, QD
     Route: 048
     Dates: start: 19970408, end: 19970415
  20. LIDOCAINE HYDROCHLORIDE [Suspect]
     Active Substance: DEXTROSE MONOHYDRATE\EPINEPHRINE\EPINEPHRINE BITARTRATE\LIDOCAINE\LIDOCAINE HYDROCHLORIDE\LIDOCAINE
     Indication: Infection prophylaxis
     Dosage: 6 G, QD
     Route: 042
     Dates: start: 19970416, end: 19970419
  21. FLUIMUCIL [Suspect]
     Active Substance: ACETYLCYSTEINE
     Indication: Nasopharyngitis
     Dosage: UNK, QD
     Route: 042
     Dates: start: 19970417, end: 19970418
  22. NIFEDIPINE [Suspect]
     Active Substance: NIFEDIPINE
     Indication: Coronary artery disease
     Dosage: 2 DF, QD
     Route: 048
     Dates: start: 19970405
  23. HEPARIN SODIUM [Suspect]
     Active Substance: HEPARIN SODIUM
     Indication: Thrombosis prophylaxis
     Dosage: 15000 IU, QD
     Route: 058
     Dates: start: 19970417
  24. URAPIDIL [Suspect]
     Active Substance: URAPIDIL
     Indication: Hypertension
     Dosage: 2 ML, QH
     Route: 042
     Dates: start: 19970417, end: 19970418
  25. RINGER-LACTAT [Concomitant]
     Indication: Fluid replacement
     Dosage: 1000 ML, QD
     Route: 042
     Dates: start: 19970418, end: 19970419
  26. DIMETHINDENE [Concomitant]
     Active Substance: DIMETHINDENE
     Indication: Pruritus
     Dosage: 3 DF, QD
     Route: 048
     Dates: start: 19970404, end: 19970420
  27. TRAPIDIL [Concomitant]
     Active Substance: TRAPIDIL
     Indication: Coronary artery disease
     Dosage: 400 MG, QD
     Route: 048
  28. RINGERS SOLUTION [Concomitant]
     Active Substance: CALCIUM CHLORIDE\POTASSIUM CHLORIDE\SODIUM CHLORIDE
     Indication: Fluid replacement
     Dosage: 42 ML, QH
     Route: 042
     Dates: start: 19970417, end: 19970417
  29. ADALAT [Concomitant]
     Active Substance: NIFEDIPINE
     Indication: Coronary artery disease
     Dosage: 30 MG, QD
     Route: 048
     Dates: end: 19970404
  30. INSULIN NOS [Concomitant]
     Active Substance: INSULIN NOS
     Indication: Diabetes mellitus
     Dosage: UNK
     Route: 058
     Dates: start: 19970417
  31. TRIAMCINOLONE [Concomitant]
     Active Substance: TRIAMCINOLONE
     Indication: Folliculitis
     Dosage: UNK UNK, QD
     Route: 061
     Dates: start: 19970425
  32. DEXAMETHASONE [Concomitant]
     Active Substance: DEXAMETHASONE
     Indication: Prophylaxis
     Dosage: 12 MG, QD
     Route: 048
     Dates: start: 19970415
  33. POTASSIUM CHLORIDE [Concomitant]
     Active Substance: POTASSIUM CHLORIDE
     Indication: Hypokalaemia
     Dosage: UNK
     Route: 042
     Dates: start: 19970417, end: 19970419
  34. TENORMIN [Concomitant]
     Active Substance: ATENOLOL
     Indication: Cardiac disorder
     Dosage: 25 MG, QD
     Route: 048
  35. CHLORHEXIDINE [Concomitant]
     Active Substance: CHLORHEXIDINE\CHLORHEXIDINE GLUCONATE
     Indication: Stomatitis
     Dosage: UNK
     Route: 002
     Dates: start: 19970425
  36. DEXTROSE [Concomitant]
     Active Substance: DEXTROSE\DEXTROSE MONOHYDRATE
     Indication: Electrolyte substitution therapy
     Dosage: 1000 ML, QD
     Route: 042
     Dates: start: 19970418, end: 19970418

REACTIONS (4)
  - Toxic epidermal necrolysis [Unknown]
  - Stevens-Johnson syndrome [Recovered/Resolved]
  - Conjunctivitis [Unknown]
  - Pyrexia [Unknown]

NARRATIVE: CASE EVENT DATE: 19970425
